FAERS Safety Report 8913852 (Version 1)
Quarter: 2012Q4

REPORT INFORMATION
  Report Type: 
  Country: PT (occurrence: PT)
  Receive Date: 20121119
  Receipt Date: 20121119
  Transmission Date: 20130627
  Serious: Yes (Other)
  Sender: FDA-Public Use
  Company Number: PT-JNJFOC-20121104409

PATIENT
  Age: 62 Year
  Sex: Male

DRUGS (6)
  1. ZALDIAR [Suspect]
     Indication: RENAL COLIC
     Route: 048
     Dates: start: 20090821, end: 20090822
  2. PRIMPERAN [Suspect]
     Indication: RENAL COLIC
     Route: 048
     Dates: start: 20090821, end: 20120822
  3. XELEVIA [Concomitant]
     Indication: PRODUCT USED FOR UNKNOWN INDICATION
     Route: 065
  4. FINASTERIDE [Concomitant]
     Indication: PRODUCT USED FOR UNKNOWN INDICATION
     Route: 065
  5. OLMETEC [Concomitant]
     Indication: PRODUCT USED FOR UNKNOWN INDICATION
     Route: 065
  6. SINVASTATINA [Concomitant]
     Indication: PRODUCT USED FOR UNKNOWN INDICATION
     Route: 065

REACTIONS (4)
  - Palatal oedema [Recovered/Resolved]
  - Tongue oedema [Recovered/Resolved]
  - Hypersensitivity [Recovered/Resolved]
  - Palatal oedema [Recovered/Resolved]
